FAERS Safety Report 18586800 (Version 1)
Quarter: 2020Q4

REPORT INFORMATION
  Report Type: Spontaneous
  Country: US (occurrence: US)
  Receive Date: 20201207
  Receipt Date: 20201207
  Transmission Date: 20210114
  Serious: Yes (Hospitalization)
  Sender: FDA-Public Use
  Company Number: None

PATIENT
  Age: 73 Year
  Sex: Male
  Weight: 95.1 kg

DRUGS (22)
  1. ASPIRIN. [Concomitant]
     Active Substance: ASPIRIN
  2. TAMSULOSIN [Concomitant]
     Active Substance: TAMSULOSIN
  3. BAMLANIVIMAB. [Suspect]
     Active Substance: BAMLANIVIMAB
     Indication: COVID-19
     Dosage: ?          OTHER FREQUENCY:ONCE;?
     Route: 041
     Dates: start: 20201202, end: 20201202
  4. ESCITALOPRAM [Concomitant]
     Active Substance: ESCITALOPRAM OXALATE
  5. POLYETHYLENE GLYCOL [Concomitant]
     Active Substance: POLYETHYLENE GLYCOLS
  6. DULAGLUTIDE. [Concomitant]
     Active Substance: DULAGLUTIDE
  7. METFORMIN [Concomitant]
     Active Substance: METFORMIN HYDROCHLORIDE
  8. MONTELUKAST [Concomitant]
     Active Substance: MONTELUKAST SODIUM
  9. METHOCARBAMOL. [Concomitant]
     Active Substance: METHOCARBAMOL
  10. PREDNISONE. [Concomitant]
     Active Substance: PREDNISONE
  11. CALCIUM CARBONATE. [Concomitant]
     Active Substance: CALCIUM CARBONATE
  12. CELEBREX [Concomitant]
     Active Substance: CELECOXIB
  13. DIVALPROEX SODIUM ER [Concomitant]
     Active Substance: DIVALPROEX SODIUM
  14. CHOLECALCIFEROL [Concomitant]
     Active Substance: CHOLECALCIFEROL
  15. LOSARTIN [Concomitant]
     Active Substance: LOSARTAN
  16. NORCO [Concomitant]
     Active Substance: ACETAMINOPHEN\HYDROCODONE BITARTRATE
  17. OMPERAZOLE [Concomitant]
     Active Substance: OMEPRAZOLE
  18. OMEGA-3 CAPSULE [Concomitant]
  19. EMPAGLIFLOZIN [Concomitant]
     Active Substance: EMPAGLIFLOZIN
  20. INSULIN GLARGINE [Concomitant]
     Active Substance: INSULIN GLARGINE
  21. PREGABALIN. [Concomitant]
     Active Substance: PREGABALIN
  22. PROCHLORPERAZINE. [Concomitant]
     Active Substance: PROCHLORPERAZINE

REACTIONS (12)
  - Haemoptysis [None]
  - Atelectasis [None]
  - Chills [None]
  - Pneumonia [None]
  - Pulmonary fibrosis [None]
  - Cough [None]
  - Nausea [None]
  - Pulmonary oedema [None]
  - Acute respiratory failure [None]
  - Respiratory failure [None]
  - Headache [None]
  - Pain [None]

NARRATIVE: CASE EVENT DATE: 20201202
